FAERS Safety Report 19195034 (Version 1)
Quarter: 2021Q2

REPORT INFORMATION
  Report Type: Report from Study
  Country: MY (occurrence: MY)
  Receive Date: 20210429
  Receipt Date: 20210429
  Transmission Date: 20210717
  Serious: Yes (Other)
  Sender: FDA-Public Use
  Company Number: MY-GILEAD-2021-0526400

PATIENT

DRUGS (2)
  1. SOFOSBUVIR [Suspect]
     Active Substance: SOFOSBUVIR
     Indication: CHRONIC HEPATITIS C
     Dosage: 400 MG, QD
     Route: 048
  2. RAVIDASVIR [Concomitant]
     Active Substance: RAVIDASVIR
     Dosage: 200 MG, QD
     Route: 048

REACTIONS (1)
  - Acute kidney injury [Unknown]
